FAERS Safety Report 11286842 (Version 3)
Quarter: 2015Q4

REPORT INFORMATION
  Report Type: Report from Study
  Country: IT (occurrence: IT)
  Receive Date: 20150721
  Receipt Date: 20151202
  Transmission Date: 20160304
  Serious: Yes (Hospitalization)
  Sender: FDA-Public Use
  Company Number: IT-ACCORD-032230

PATIENT
  Age: 79 Year
  Sex: Male

DRUGS (9)
  1. LANSOPRAZOLE. [Concomitant]
     Active Substance: LANSOPRAZOLE
     Dates: start: 2013
  2. FLUOROURACIL. [Suspect]
     Active Substance: FLUOROURACIL
     Indication: COLORECTAL CANCER METASTATIC
     Dosage: ALSO RECEIVED INTRAVENOUS DRIP OF FLUOROURACIL 1814 MG ON 13TH APRIL 2015 AND 20TH MAY 2015.
     Route: 040
     Dates: start: 20150520
  3. REPAGLINIDE. [Concomitant]
     Active Substance: REPAGLINIDE
     Dates: start: 1996
  4. IRINOTECAN [Suspect]
     Active Substance: IRINOTECAN
     Indication: COLORECTAL CANCER METASTATIC
     Route: 041
     Dates: start: 20150413, end: 20150520
  5. ROPINIROLE/ROPINIROLE HYDROCHLORIDE [Concomitant]
     Dates: start: 2012
  6. LEUCOVORIN. [Suspect]
     Active Substance: LEUCOVORIN
     Indication: COLORECTAL CANCER METASTATIC
     Dosage: PREVIOUSLY RECEIVED 302 MG ON 13-APR-2015 VIA INTRAVENOUS DRIP.
     Route: 041
     Dates: start: 20150520, end: 20150520
  7. INSULIN GLARGINE [Concomitant]
     Active Substance: INSULIN GLARGINE
     Dates: start: 1996
  8. AFLIBERCEPT [Suspect]
     Active Substance: AFLIBERCEPT
     Indication: COLORECTAL CANCER METASTATIC
     Dosage: 300 MG CYCLICAL
     Route: 041
     Dates: start: 20150413, end: 20150520
  9. SAMYR [Concomitant]
     Active Substance: METHIONINE
     Dates: start: 2012

REACTIONS (1)
  - Arterial occlusive disease [Recovered/Resolved]

NARRATIVE: CASE EVENT DATE: 20150530
